APPROVED DRUG PRODUCT: ROSUVASTATIN CALCIUM
Active Ingredient: ROSUVASTATIN CALCIUM
Strength: EQ 5MG BASE
Dosage Form/Route: TABLET;ORAL
Application: A207616 | Product #001 | TE Code: AB
Applicant: HETERO LABS LTD UNIT V
Approved: Oct 31, 2016 | RLD: No | RS: No | Type: RX